FAERS Safety Report 24707733 (Version 1)
Quarter: 2024Q4

REPORT INFORMATION
  Report Type: Spontaneous
  Country: AT (occurrence: AT)
  Receive Date: 20241206
  Receipt Date: 20241206
  Transmission Date: 20250114
  Serious: Yes (Hospitalization, Other)
  Sender: MEITHEAL PHARMACEUTICALS
  Company Number: AT-MEITHEAL-2024MPLIT00426

PATIENT
  Age: 59 Year
  Sex: Female

DRUGS (4)
  1. MELPHALAN HYDROCHLORIDE [Suspect]
     Active Substance: MELPHALAN HYDROCHLORIDE
     Indication: Plasma cell myeloma
     Dosage: THREE CYCLES
     Route: 065
  2. PREDNISOLONE [Concomitant]
     Active Substance: PREDNISOLONE
     Indication: Plasma cell myeloma
     Dosage: THREE CYCLES
     Route: 065
  3. CARVEDILOL [Concomitant]
     Active Substance: CARVEDILOL
     Indication: Cardiovascular disorder
     Route: 065
  4. AMLODIPINE [Concomitant]
     Active Substance: AMLODIPINE BESYLATE
     Indication: Cardiovascular disorder
     Route: 065

REACTIONS (1)
  - Pulmonary veno-occlusive disease [Recovered/Resolved]
